FAERS Safety Report 7542709-7 (Version None)
Quarter: 2011Q2

REPORT INFORMATION
  Report Type: 
  Country: None (occurrence: None)
  Receive Date: 20110613
  Receipt Date: 20110606
  Transmission Date: 20111010
  Serious: Yes (Other)
  Sender: FDA-Public Use
  Company Number: A0576381A

PATIENT
  Age: 80 Year
  Sex: Female

DRUGS (12)
  1. COMBIVENT [Concomitant]
     Dosage: 2PUFF VARIABLE DOSE
     Route: 055
  2. THYROID TAB [Concomitant]
     Route: 048
  3. FLOVENT [Suspect]
     Dosage: 1PUFF TWICE PER DAY
     Route: 055
     Dates: start: 20100409
  4. FLOVENT [Suspect]
     Route: 055
     Dates: start: 20051001
  5. XOPENEX [Suspect]
     Route: 055
  6. ASCORBIC ACID [Concomitant]
  7. ADVAIR DISKUS 100/50 [Suspect]
     Indication: ASTHMA
     Route: 055
     Dates: start: 20100901, end: 20110101
  8. VITAMIN D [Concomitant]
  9. CALCIUM CARBONATE [Concomitant]
  10. FLOVENT [Suspect]
     Indication: ASTHMA
     Dosage: 1PUFF THREE TIMES PER DAY
     Route: 055
     Dates: start: 20100201, end: 20101101
  11. THEOPHYLLINE [Concomitant]
  12. PREDNISONE [Concomitant]
     Dates: end: 20100726

REACTIONS (23)
  - DYSPNOEA [None]
  - PRODUCTIVE COUGH [None]
  - ARTHRALGIA [None]
  - CHEST DISCOMFORT [None]
  - NO THERAPEUTIC RESPONSE [None]
  - SWOLLEN TONGUE [None]
  - LIP SWELLING [None]
  - CONFUSIONAL STATE [None]
  - URTICARIA [None]
  - DRUG INEFFECTIVE [None]
  - MALAISE [None]
  - GAIT DISTURBANCE [None]
  - INCREASED UPPER AIRWAY SECRETION [None]
  - BONE PAIN [None]
  - BREATH ODOUR [None]
  - PULMONARY CONGESTION [None]
  - DYSPHONIA [None]
  - THROAT TIGHTNESS [None]
  - JOINT STIFFNESS [None]
  - PALPITATIONS [None]
  - PRURITUS [None]
  - OVERDOSE [None]
  - EMOTIONAL DISTRESS [None]
